FAERS Safety Report 4788555-9 (Version None)
Quarter: 2005Q4

REPORT INFORMATION
  Report Type: 
  Country: None (occurrence: None)
  Receive Date: 20051005
  Receipt Date: 20051005
  Transmission Date: 20060501
  Serious: Yes (Life-Threatening)
  Sender: FDA-Public Use
  Company Number: None

PATIENT
  Age: 35 Year
  Sex: Female
  Weight: 50 kg

DRUGS (8)
  1. BACTRIM [Suspect]
     Indication: PNEUMOCYSTIS JIROVECI PNEUMONIA
     Dosage: 350 MG IV Q 8 H
     Route: 042
     Dates: start: 20050208
  2. HEPARIN [Concomitant]
  3. LANSOPRAZOLE [Concomitant]
  4. FLUCONAZOLE [Concomitant]
  5. PREDNISONE [Concomitant]
  6. LORAZEPAM [Concomitant]
  7. INSULIN [Concomitant]
  8. APAP TAB [Concomitant]

REACTIONS (1)
  - HYPONATRAEMIA [None]
